FAERS Safety Report 8886504 (Version 8)
Quarter: 2016Q3

REPORT INFORMATION
  Report Type: Spontaneous
  Country: US (occurrence: US)
  Receive Date: 20121105
  Receipt Date: 20160919
  Transmission Date: 20161109
  Serious: Yes (Hospitalization, Disabling, Other)
  Sender: FDA-Public Use
  Company Number: US-009507513-1210USA012359

PATIENT
  Sex: Female
  Weight: 55.78 kg

DRUGS (4)
  1. FOSAMAX [Suspect]
     Active Substance: ALENDRONATE SODIUM
     Indication: OSTEOPOROSIS
     Dosage: 10 MG, UNK
     Route: 048
     Dates: start: 19980803, end: 20041111
  2. ALENDRONATE SODIUM. [Suspect]
     Active Substance: ALENDRONATE SODIUM
     Dosage: 70 MG, QW
     Route: 048
  3. FOSAMAX [Suspect]
     Active Substance: ALENDRONATE SODIUM
     Dosage: 70 MG, QD
     Route: 048
     Dates: end: 2001
  4. FOSAMAX [Suspect]
     Active Substance: ALENDRONATE SODIUM
     Dosage: 70 MG, QW
     Route: 048
     Dates: start: 2007

REACTIONS (17)
  - Radius fracture [Recovered/Resolved]
  - Inappropriate schedule of drug administration [Unknown]
  - Cardiac murmur [Unknown]
  - Procedural nausea [Recovering/Resolving]
  - Oedema [Unknown]
  - Drug ineffective [Unknown]
  - Depression [Not Recovered/Not Resolved]
  - Insomnia [Unknown]
  - Adverse drug reaction [Unknown]
  - Femoral neck fracture [Recovering/Resolving]
  - Low turnover osteopathy [Unknown]
  - Nausea [Unknown]
  - Medical device removal [Unknown]
  - Femur fracture [Not Recovered/Not Resolved]
  - Ankle fracture [Unknown]
  - Cachexia [Unknown]
  - Femoral neck fracture [Unknown]

NARRATIVE: CASE EVENT DATE: 199806
